FAERS Safety Report 8880675 (Version 1)
Quarter: 2012Q4

REPORT INFORMATION
  Report Type: 
  Country: DE (occurrence: DE)
  Receive Date: 20121101
  Receipt Date: 20121101
  Transmission Date: 20130627
  Serious: Yes (Hospitalization)
  Sender: FDA-Public Use
  Company Number: DE-GENZYME-THYM-1003417

PATIENT
  Sex: Female
  Weight: 67.9 kg

DRUGS (4)
  1. THYMOGLOBULINE [Suspect]
     Indication: RENAL TRANSPLANT
     Dosage: 250 mg, qd
     Route: 042
     Dates: start: 20120816, end: 20120819
  2. TACROLIMUS [Suspect]
     Indication: RENAL TRANSPLANT
     Dosage: 12 mg, UNK
     Route: 048
     Dates: start: 20120816
  3. CELLCEPT [Suspect]
     Indication: RENAL TRANSPLANT
     Dosage: 2 mg, UNK
     Route: 048
     Dates: start: 20120816
  4. DECORTIN H [Suspect]
     Indication: RENAL TRANSPLANT
     Dosage: 500 mg, qd
     Route: 048
     Dates: start: 20120816, end: 20120823

REACTIONS (1)
  - Subileus [Unknown]
